FAERS Safety Report 9856406 (Version 3)
Quarter: 2014Q1

REPORT INFORMATION
  Report Type: Spontaneous
  Country: DK (occurrence: JP)
  Receive Date: 20140130
  Receipt Date: 20140320
  Transmission Date: 20141002
  Serious: Yes (Life-Threatening, Hospitalization)
  Sender: FDA-Public Use
  Company Number: JP-FRI-1000053218

PATIENT
  Age: 58 Year
  Sex: Male
  Weight: 59 kg

DRUGS (5)
  1. LEXAPRO [Suspect]
     Indication: OBSESSIVE-COMPULSIVE DISORDER
     Dosage: 10 MG
     Route: 048
     Dates: start: 20131129, end: 20131202
  2. U-PAN [Suspect]
     Indication: TENSION
     Dosage: 3 MG
     Route: 048
     Dates: start: 20131129, end: 20131203
  3. DEPROMEL [Suspect]
     Indication: OBSESSIVE-COMPULSIVE DISORDER
     Dosage: 150 MG
     Route: 048
     Dates: start: 20131112, end: 20131204
  4. FOLIAMIN [Suspect]
     Indication: ANAEMIA FOLATE DEFICIENCY
     Dosage: 15 MG
     Route: 048
     Dates: start: 20131128, end: 20131203
  5. INVEGA [Suspect]
     Indication: AUTISM SPECTRUM DISORDER
     Dosage: 6 MG
     Route: 048
     Dates: start: 20131024, end: 20131128

REACTIONS (1)
  - Pancytopenia [Recovered/Resolved]
